FAERS Safety Report 5941473-2 (Version None)
Quarter: 2008Q4

REPORT INFORMATION
  Report Type: 
  Country: None (occurrence: None)
  Receive Date: 20081105
  Receipt Date: 20081027
  Transmission Date: 20090506
  Serious: Yes (Other)
  Sender: FDA-Public Use
  Company Number: JP-BAYER-200812595BYL

PATIENT
  Age: 69 Year
  Sex: Male
  Weight: 74 kg

DRUGS (2)
  1. NEXAVAR [Suspect]
     Indication: RENAL CELL CARCINOMA STAGE IV
     Dosage: UNIT DOSE: 200 MG
     Route: 048
     Dates: start: 20080624
  2. NEXAVAR [Suspect]
     Dosage: UNIT DOSE: 200 MG
     Route: 048
     Dates: start: 20080712

REACTIONS (3)
  - AORTIC DISSECTION [None]
  - COUGH [None]
  - PALMAR-PLANTAR ERYTHRODYSAESTHESIA SYNDROME [None]
